FAERS Safety Report 5911466-X (Version None)
Quarter: 2008Q4

REPORT INFORMATION
  Report Type: 
  Country: None (occurrence: None)
  Receive Date: 20081007
  Receipt Date: 20080929
  Transmission Date: 20090506
  Serious: Yes (Other)
  Sender: FDA-Public Use
  Company Number: US-PFIZER INC-2008083375

PATIENT
  Age: 41 Year
  Sex: Female

DRUGS (4)
  1. VIRACEPT [Suspect]
     Indication: ACQUIRED IMMUNODEFICIENCY SYNDROME
     Dosage: DAILY DOSE:2500MG
     Route: 048
     Dates: start: 20070111, end: 20080828
  2. KALETRA [Suspect]
     Indication: ACQUIRED IMMUNODEFICIENCY SYNDROME
     Dosage: TEXT:800/200MG
     Route: 048
     Dates: start: 20080917, end: 20080918
  3. COMBIVIR [Suspect]
     Indication: ACQUIRED IMMUNODEFICIENCY SYNDROME
     Dosage: TEXT:600/300MG
     Route: 048
     Dates: start: 20080917, end: 20080918
  4. TRUVADA [Suspect]
     Indication: ACQUIRED IMMUNODEFICIENCY SYNDROME
     Dosage: TEXT:200/300MG
     Route: 048
     Dates: start: 20070111, end: 20080828

REACTIONS (1)
  - ABORTION SPONTANEOUS [None]
